FAERS Safety Report 5404410-5 (Version None)
Quarter: 2007Q3

REPORT INFORMATION
  Report Type: 
  Country: None (occurrence: None)
  Receive Date: 20070802
  Receipt Date: 20070724
  Transmission Date: 20080115
  Serious: Yes (Hospitalization, Other)
  Sender: FDA-Public Use
  Company Number: JP-PFIZER INC-2007060225

PATIENT
  Sex: Female
  Weight: 47 kg

DRUGS (12)
  1. SOLU-MEDROL [Suspect]
     Indication: MULTIPLE SCLEROSIS
     Route: 042
     Dates: start: 20070628, end: 20070710
  2. WARFARIN SODIUM [Concomitant]
     Route: 048
     Dates: start: 20070521, end: 20070706
  3. MAGNESIUM OXIDE [Concomitant]
     Indication: CONSTIPATION
     Route: 048
  4. BUFFERIN [Concomitant]
     Route: 048
  5. ALFAROL [Concomitant]
     Indication: OSTEOPOROSIS
     Route: 048
  6. JUVELA [Concomitant]
     Route: 048
  7. LIPITOR [Concomitant]
     Indication: HYPERLIPIDAEMIA
     Route: 048
  8. FAMOTIDINE [Concomitant]
     Indication: GASTRITIS
     Route: 048
  9. MECOBALAMIN [Concomitant]
     Route: 048
  10. BROTIZOLAM [Concomitant]
     Indication: INSOMNIA
     Route: 048
  11. PREDNISOLONE [Concomitant]
     Route: 048
     Dates: start: 20070521, end: 20070628
  12. BETASERON [Concomitant]
     Route: 058

REACTIONS (2)
  - HAEMOLYTIC ANAEMIA [None]
  - THROMBOCYTOPENIA [None]
